FAERS Safety Report 11981894 (Version 1)
Quarter: 2016Q1

REPORT INFORMATION
  Report Type: Report from Study
  Country: CN (occurrence: CN)
  Receive Date: 20160201
  Receipt Date: 20160201
  Transmission Date: 20160526
  Serious: Yes (Death, Hospitalization)
  Sender: FDA-Public Use
  Company Number: CN-ROCHE-1407953

PATIENT
  Sex: Male
  Weight: 50 kg

DRUGS (1)
  1. AVASTIN [Suspect]
     Active Substance: BEVACIZUMAB
     Indication: COLON CANCER
     Route: 041
     Dates: start: 20140415

REACTIONS (5)
  - Metastatic neoplasm [Fatal]
  - Intestinal obstruction [Unknown]
  - Intestinal polyp [Unknown]
  - Flatulence [Unknown]
  - Ascites [Unknown]
